FAERS Safety Report 5895249-5 (Version None)
Quarter: 2008Q3

REPORT INFORMATION
  Report Type: 
  Country: None (occurrence: None)
  Receive Date: 20080924
  Receipt Date: 20080919
  Transmission Date: 20090109
  Serious: Yes (Life-Threatening)
  Sender: FDA-Public Use
  Company Number: B0537885A

PATIENT
  Age: 39 Year
  Sex: Male

DRUGS (7)
  1. EPZICOM [Suspect]
     Indication: ACQUIRED IMMUNODEFICIENCY SYNDROME
     Route: 048
     Dates: start: 20070312, end: 20070518
  2. FOSCAVIR [Suspect]
     Indication: CYTOMEGALOVIRUS CHORIORETINITIS
     Dosage: 100MGK TWICE PER DAY
     Dates: start: 20070315, end: 20070402
  3. KALETRA [Concomitant]
     Indication: ACQUIRED IMMUNODEFICIENCY SYNDROME
     Route: 048
     Dates: start: 20070312, end: 20070518
  4. CIPROFLOXACIN HCL [Concomitant]
     Indication: INFECTION PROPHYLAXIS
     Dosage: 300MG TWICE PER DAY
     Dates: end: 20070518
  5. P N TWIN [Concomitant]
     Indication: PARENTERAL NUTRITION
     Dosage: 1200ML PER DAY
     Dates: end: 20070518
  6. FLUID [Concomitant]
     Indication: PARENTERAL NUTRITION
     Dosage: 500ML PER DAY
     Dates: end: 20070518
  7. GANCICLOVIR [Concomitant]
     Indication: CYTOMEGALOVIRUS CHORIORETINITIS
     Dosage: 100MG PER DAY
     Route: 065
     Dates: start: 20070415, end: 20070423

REACTIONS (4)
  - ANAEMIA [None]
  - CYTOMEGALOVIRUS CHORIORETINITIS [None]
  - PLATELET COUNT DECREASED [None]
  - RED BLOOD CELL COUNT DECREASED [None]
